FAERS Safety Report 24404173 (Version 1)
Quarter: 2024Q4

REPORT INFORMATION
  Report Type: Spontaneous
  Country: ES (occurrence: ES)
  Receive Date: 20241007
  Receipt Date: 20241007
  Transmission Date: 20250114
  Serious: Yes (Other)
  Sender: NOVARTIS
  Company Number: None

PATIENT
  Age: 67 Year
  Sex: Female

DRUGS (1)
  1. LEQVIO [Suspect]
     Active Substance: INCLISIRAN SODIUM
     Indication: Hypercholesterolaemia
     Dosage: 284 MG, Q3MO (1 INYECCI?N BASAL, 2? INYECCI?N A LOS 3 MESES, POSTERIORMENTE 1 INYECCI?N CADA 6 MESES
     Route: 058
     Dates: start: 20240625, end: 20240923

REACTIONS (1)
  - Rash papulosquamous [Recovering/Resolving]

NARRATIVE: CASE EVENT DATE: 20240626
